FAERS Safety Report 4312169-8 (Version None)
Quarter: 2004Q1

REPORT INFORMATION
  Report Type: 
  Country: None (occurrence: None)
  Receive Date: 20040303
  Receipt Date: 20010531
  Transmission Date: 20041129
  Serious: Yes (Death, Hospitalization)
  Sender: FDA-Public Use
  Company Number: NSADSS2001021124

PATIENT
  Age: 39 Year
  Sex: Male

DRUGS (9)
  1. REMICADE [Suspect]
     Indication: CROHN'S DISEASE
     Dosage: INTRAVENOUS DRIP
     Route: 041
     Dates: start: 20000204, end: 20000204
  2. REMICADE [Suspect]
     Indication: CROHN'S DISEASE
     Dosage: INTRAVENOUS DRIP
     Route: 041
     Dates: start: 20000218, end: 20000218
  3. REMICADE [Suspect]
     Indication: CROHN'S DISEASE
     Dosage: INTRAVENOUS DRIP
     Route: 041
     Dates: start: 20000317, end: 20000317
  4. PLACEBO (PLACEBO) [Suspect]
     Indication: CROHN'S DISEASE
     Dosage: INTRAVENOUS
     Route: 042
     Dates: start: 19960911
  5. PLACEBO (PLACEBO) [Suspect]
     Indication: CROHN'S DISEASE
     Dosage: INTRAVENOUS
     Route: 042
     Dates: start: 19960925
  6. PLACEBO (PLACEBO) [Suspect]
     Indication: CROHN'S DISEASE
     Dosage: INTRAVENOUS
     Route: 042
     Dates: start: 19961025
  7. PROPACET (PROPACET) [Concomitant]
  8. ROXICET [Concomitant]
  9. LOPRESSOR [Concomitant]

REACTIONS (6)
  - ABDOMINAL DISCOMFORT [None]
  - CANDIDIASIS [None]
  - COLON CANCER METASTATIC [None]
  - CONSTIPATION [None]
  - MALIGNANT NEOPLASM PROGRESSION [None]
  - WEIGHT DECREASED [None]
